FAERS Safety Report 9260790 (Version 1)
Quarter: 2013Q2

REPORT INFORMATION
  Report Type: Spontaneous
  Country: DE (occurrence: DE)
  Receive Date: 20130429
  Receipt Date: 20130429
  Transmission Date: 20140414
  Serious: Yes (Hospitalization)
  Sender: FDA-Public Use
  Company Number: DE-MYLANLABS-2013S1008367

PATIENT
  Age: 23 Year
  Sex: Female

DRUGS (1)
  1. AZATHIOPRIN [Suspect]
     Indication: CROHN^S DISEASE
     Route: 048
     Dates: start: 201103, end: 201210

REACTIONS (1)
  - Alveolitis [Recovering/Resolving]
